FAERS Safety Report 5105659-1 (Version None)
Quarter: 2006Q3

REPORT INFORMATION
  Report Type: 
  Country: None (occurrence: None)
  Receive Date: 20060731
  Receipt Date: 20060427
  Transmission Date: 20061208
  Serious: Yes (Death)
  Sender: FDA-Public Use
  Company Number: US-JNJFOC-20060402357

PATIENT
  Age: 79 Year
  Sex: Male

DRUGS (4)
  1. RISPERDAL [Suspect]
     Indication: DEMENTIA ALZHEIMER'S TYPE
     Dosage: ORAL
     Route: 048
     Dates: start: 20060101, end: 20060208
  2. ARICEPT [Concomitant]
  3. BLOOD PRESSURE PILL (ANTIHYPERTENSIVES) [Concomitant]
  4. INSULIN (INSULIN) [Concomitant]

REACTIONS (1)
  - CARDIAC ARREST [None]
